FAERS Safety Report 10074617 (Version 2)
Quarter: 2014Q2

REPORT INFORMATION
  Report Type: Report from Study
  Country: US (occurrence: US)
  Receive Date: 20140414
  Receipt Date: 20140414
  Transmission Date: 20141212
  Serious: Yes (Hospitalization)
  Sender: FDA-Public Use
  Company Number: PHEH2013US021260

PATIENT
  Age: 71 Year
  Sex: Female

DRUGS (7)
  1. TOBI [Suspect]
     Indication: BRONCHIECTASIS
     Dosage: 1 DF, BID 28 DAYS ON 28 DAYS OFF
     Route: 055
  2. PEPCID [Concomitant]
     Dosage: 20 MG
  3. TYLENOL [Concomitant]
     Dosage: 325 MG
  4. PULMOZYME [Concomitant]
     Dosage: UNK
  5. L-THYROXINE [Concomitant]
     Dosage: 88 UG
  6. PREDNISONE [Concomitant]
     Dosage: 10 MG
  7. LEVALBUTEROL [Concomitant]
     Dosage: 3 ML/12-1.25 MG
     Route: 055

REACTIONS (5)
  - Pneumonia bacterial [Unknown]
  - Dyspnoea [Unknown]
  - Asphyxia [Unknown]
  - Cough [Unknown]
  - Pseudomonas infection [Unknown]
